FAERS Safety Report 15232818 (Version 1)
Quarter: 2018Q3

REPORT INFORMATION
  Report Type: Report from Study
  Country: JP (occurrence: JP)
  Receive Date: 20180802
  Receipt Date: 20180802
  Transmission Date: 20181010
  Serious: Yes (Death)
  Sender: FDA-Public Use
  Company Number: JP-BEH-2018093352

PATIENT
  Age: 63 Year
  Sex: Female
  Weight: 54.7 kg

DRUGS (3)
  1. BERIPLEX P/N [Suspect]
     Active Substance: COAGULATION FACTOR IX HUMAN\COAGULATION FACTOR VII HUMAN\COAGULATION FACTOR X HUMAN\PROTEIN C\PROTEIN S HUMAN\PROTHROMBIN
     Indication: SURGERY
     Dosage: 2000 IU, SINGLE
     Route: 042
     Dates: start: 20180207
  2. WARFARIN                           /00014803/ [Concomitant]
     Active Substance: WARFARIN
     Indication: PRODUCT USED FOR UNKNOWN INDICATION
     Dosage: 2 MG, UNK
     Route: 048
     Dates: start: 20180207
  3. KAYTWO [Concomitant]
     Active Substance: MENATETRENONE
     Indication: VITAMIN K
     Dosage: 20 MG, UNK
     Route: 065
     Dates: start: 20180207

REACTIONS (1)
  - Death [Fatal]
